FAERS Safety Report 18202134 (Version 6)
Quarter: 2021Q1

REPORT INFORMATION
  Report Type: Spontaneous
  Country: US (occurrence: US)
  Receive Date: 20200827
  Receipt Date: 20210219
  Transmission Date: 20210419
  Serious: No
  Sender: FDA-Public Use
  Company Number: US-PFIZER INC-2020288187

PATIENT
  Age: 75 Year
  Sex: Male

DRUGS (1)
  1. IBRANCE [Suspect]
     Active Substance: PALBOCICLIB
     Indication: DEDIFFERENTIATED LIPOSARCOMA
     Dosage: 125 MG
     Dates: start: 2020, end: 2020

REACTIONS (5)
  - Off label use [Unknown]
  - Neoplasm progression [Unknown]
  - Pain [Unknown]
  - White blood cell count decreased [Unknown]
  - Gait disturbance [Unknown]

NARRATIVE: CASE EVENT DATE: 2020
